FAERS Safety Report 8563980-9 (Version None)
Quarter: 2012Q3

REPORT INFORMATION
  Report Type: 
  Country: None (occurrence: None)
  Receive Date: 20120803
  Receipt Date: 20120731
  Transmission Date: 20120928
  Serious: Yes (Other)
  Sender: FDA-Public Use
  Company Number: PHEH2012US014936

PATIENT
  Sex: Female

DRUGS (3)
  1. PREVACID [Concomitant]
  2. ENABLEX [Concomitant]
  3. RECLAST [Suspect]
     Dosage: UNK
     Route: 042
     Dates: start: 20120727

REACTIONS (8)
  - HYPOKALAEMIA [None]
  - DYSPNOEA [None]
  - DEHYDRATION [None]
  - HEADACHE [None]
  - BACK PAIN [None]
  - VOMITING [None]
  - HYPERTENSION [None]
  - CHEST PAIN [None]
